FAERS Safety Report 7730145-X (Version None)
Quarter: 2011Q3

REPORT INFORMATION
  Report Type: 
  Country: None (occurrence: None)
  Receive Date: 20110906
  Receipt Date: 20110831
  Transmission Date: 20111222
  Serious: Yes (Other)
  Sender: FDA-Public Use
  Company Number: JP-PFIZER INC-2011204753

PATIENT
  Age: 27 Year
  Sex: Male

DRUGS (6)
  1. EPPI-KA-ZYUTU-TO [Suspect]
     Dosage: UNK
  2. LYRICA [Suspect]
     Indication: PAIN
     Dosage: 25 MG DAILY
     Route: 048
     Dates: start: 20110812, end: 20110814
  3. RINDERON-DP [Suspect]
     Dosage: UNK
  4. ALLEGRA [Suspect]
     Dosage: UNK
  5. LYRICA [Suspect]
     Indication: PRURITUS
  6. PROTOPIC [Suspect]
     Dosage: UNK

REACTIONS (8)
  - EOSINOPHIL COUNT INCREASED [None]
  - WEIGHT INCREASED [None]
  - PLEURAL EFFUSION [None]
  - PYREXIA [None]
  - HEPATIC FUNCTION ABNORMAL [None]
  - BLOOD CREATINE PHOSPHOKINASE INCREASED [None]
  - MALAISE [None]
  - GENERALISED OEDEMA [None]
